FAERS Safety Report 24360791 (Version 1)
Quarter: 2024Q3

REPORT INFORMATION
  Report Type: Spontaneous
  Country: US (occurrence: US)
  Receive Date: 20240925
  Receipt Date: 20240925
  Transmission Date: 20241017
  Serious: No
  Sender: Harrow Health
  Company Number: US-IMP-2024000713

PATIENT
  Age: 71 Year
  Sex: Female
  Weight: 61.6 kg

DRUGS (2)
  1. POLYVINYL ALCOHOL\POVIDONE [Suspect]
     Active Substance: POLYVINYL ALCOHOL\POVIDONE
     Indication: Visual impairment
     Dosage: THREE TIMES A DAY, TWO DROPS  (ALSO REPORTED AS 1 DROP) TO EACH EYE
     Route: 047
     Dates: start: 20240827, end: 20240830
  2. DEPO-MEDROL [Suspect]
     Active Substance: METHYLPREDNISOLONE ACETATE
     Indication: Product used for unknown indication
     Route: 065
     Dates: start: 202408

REACTIONS (2)
  - Pharyngeal swelling [Unknown]
  - Dysphagia [Unknown]

NARRATIVE: CASE EVENT DATE: 20240828
